FAERS Safety Report 12654559 (Version 1)
Quarter: 2016Q3

REPORT INFORMATION
  Report Type: Spontaneous
  Country: US (occurrence: None)
  Receive Date: 20160815
  Receipt Date: 20160815
  Transmission Date: 20161109
  Serious: Yes (Disabling)
  Sender: FDA-Public Use
  Company Number: None

PATIENT
  Age: 57 Year
  Sex: Female
  Weight: 77.11 kg

DRUGS (12)
  1. OXYCODONE ACETAMINOPHEN [Suspect]
     Active Substance: ACETAMINOPHEN\OXYCODONE HYDROCHLORIDE
     Indication: RADICULOPATHY
     Dosage: 1 TABLET(S) EVERY 6 HOURS TAKEN BY MOUTH
     Route: 048
     Dates: start: 20160812
  2. TRAZODONE [Concomitant]
     Active Substance: TRAZODONE HYDROCHLORIDE
  3. OXYCODONE ACETAMINOPHEN [Suspect]
     Active Substance: ACETAMINOPHEN\OXYCODONE HYDROCHLORIDE
     Indication: NEURALGIA
     Dosage: 1 TABLET(S) EVERY 6 HOURS TAKEN BY MOUTH
     Route: 048
     Dates: start: 20160812
  4. ZOLOFT [Concomitant]
     Active Substance: SERTRALINE HYDROCHLORIDE
  5. LEVSIN [Concomitant]
     Active Substance: HYOSCYAMINE SULFATE
  6. MULTIVITAMIN [Concomitant]
     Active Substance: VITAMINS
  7. FLECTOR [Concomitant]
     Active Substance: DICLOFENAC EPOLAMINE
  8. GABAPENTIN. [Concomitant]
     Active Substance: GABAPENTIN
  9. TEMAZRPAM [Concomitant]
  10. ADVIL [Concomitant]
     Active Substance: IBUPROFEN
  11. VITAMIN D [Concomitant]
     Active Substance: CHOLECALCIFEROL
  12. NAPROXEN. [Concomitant]
     Active Substance: NAPROXEN

REACTIONS (3)
  - Product substitution issue [None]
  - Pain [None]
  - Drug ineffective [None]

NARRATIVE: CASE EVENT DATE: 20160812
